FAERS Safety Report 6466428-3 (Version None)
Quarter: 2009Q4

REPORT INFORMATION
  Report Type: 
  Country: None (occurrence: None)
  Receive Date: 20091202
  Receipt Date: 20091123
  Transmission Date: 20100525
  Serious: Yes (Other)
  Sender: FDA-Public Use
  Company Number: DE-AMGEN-QUU376340

PATIENT
  Sex: Female

DRUGS (1)
  1. MIMPARA [Suspect]
     Indication: PRE-EXISTING DISEASE

REACTIONS (5)
  - CONVULSION [None]
  - MALAISE [None]
  - MOOD ALTERED [None]
  - PARAESTHESIA [None]
  - WEIGHT INCREASED [None]
